FAERS Safety Report 23310274 (Version 1)
Quarter: 2023Q4

REPORT INFORMATION
  Report Type: Spontaneous
  Country: US (occurrence: None)
  Receive Date: 20231218
  Receipt Date: 20231218
  Transmission Date: 20240109
  Serious: Yes (Other)
  Sender: FDA-Public Use
  Company Number: None

PATIENT
  Age: 66 Year
  Sex: Female

DRUGS (2)
  1. FORTEO [Suspect]
     Active Substance: TERIPARATIDE
     Indication: Osteoporosis
     Dosage: OTHER QUANTITY : 600MCG/2.4ML;?FREQUENCY : DAILY;?
     Route: 058
     Dates: start: 20220831
  2. DULOXETINE [Concomitant]
     Active Substance: DULOXETINE

REACTIONS (3)
  - Anal cancer [None]
  - Muscle spasms [None]
  - Therapy interrupted [None]

NARRATIVE: CASE EVENT DATE: 20231201
